FAERS Safety Report 13904117 (Version 1)
Quarter: 2017Q3

REPORT INFORMATION
  Report Type: Report from Study
  Country: GB (occurrence: GB)
  Receive Date: 20170825
  Receipt Date: 20170825
  Transmission Date: 20171127
  Serious: Yes (Death, Hospitalization)
  Sender: FDA-Public Use
  Company Number: GB-CELGENEUS-GBR-2014102297

PATIENT
  Age: 67 Year
  Sex: Female

DRUGS (6)
  1. CYCLOPHOSPHAMIDE. [Suspect]
     Active Substance: CYCLOPHOSPHAMIDE
     Indication: PLASMA CELL MYELOMA
     Dosage: TOTAL DOSE 800MG
     Route: 048
     Dates: start: 20120726
  2. DEXAMETHASONE. [Suspect]
     Active Substance: DEXAMETHASONE
     Indication: PLASMA CELL MYELOMA
     Dosage: TOTAL DOSE 160MG
     Route: 048
     Dates: start: 20120726
  3. THALIDOMIDE [Suspect]
     Active Substance: THALIDOMIDE
     Dosage: TOTAL DOSE 4200MG
     Route: 048
     Dates: end: 20121022
  4. DEXAMETHASONE. [Suspect]
     Active Substance: DEXAMETHASONE
     Dosage: TOTAL DOSE 160MG
     Route: 048
     Dates: end: 20121016
  5. THALIDOMIDE [Suspect]
     Active Substance: THALIDOMIDE
     Indication: PLASMA CELL MYELOMA
     Dosage: TOTAL DOSE 4200MG
     Route: 048
     Dates: start: 20120726
  6. AMOXICILLIN. [Suspect]
     Active Substance: AMOXICILLIN
     Indication: PRODUCT USED FOR UNKNOWN INDICATION
     Route: 065

REACTIONS (2)
  - Muscular weakness [Recovered/Resolved]
  - Adenocarcinoma pancreas [Fatal]

NARRATIVE: CASE EVENT DATE: 20140925
